FAERS Safety Report 7716736-0 (Version None)
Quarter: 2011Q3

REPORT INFORMATION
  Report Type: 
  Country: None (occurrence: None)
  Receive Date: 20110829
  Receipt Date: 20110825
  Transmission Date: 20111222
  Serious: Yes (Death)
  Sender: FDA-Public Use
  Company Number: GB-ABBOTT-11P-167-0849406-00

PATIENT
  Sex: Female

DRUGS (1)
  1. HUMIRA [Suspect]
     Indication: RHEUMATOID ARTHRITIS
     Route: 058
     Dates: start: 20031007, end: 20040115

REACTIONS (3)
  - SEPSIS [None]
  - RECTAL ABSCESS [None]
  - OSTEOPOROSIS [None]
